FAERS Safety Report 8304615-X (Version None)
Quarter: 2012Q2

REPORT INFORMATION
  Report Type: 
  Country: None (occurrence: None)
  Receive Date: 20120423
  Receipt Date: 20120412
  Transmission Date: 20120825
  Serious: Yes (Hospitalization)
  Sender: FDA-Public Use
  Company Number: JP-VERTEX PHARMACEUTICALS INC.-AE-2012-002426

PATIENT
  Age: 59 Year
  Sex: Female

DRUGS (8)
  1. TELAVIC (TELAPREVIR) [Suspect]
     Indication: HEPATITIS C
     Route: 048
     Dates: start: 20120209, end: 20120215
  2. REBETOL [Concomitant]
     Indication: HEPATITIS C
     Route: 048
     Dates: start: 20120209, end: 20120215
  3. LENDROMIN D [Concomitant]
     Route: 048
  4. PEG-INTRON [Concomitant]
     Indication: HEPATITIS C
     Route: 058
     Dates: start: 20120209, end: 20120215
  5. REBETOL [Concomitant]
     Route: 048
     Dates: start: 20120224
  6. LOXONIN [Concomitant]
     Route: 048
     Dates: start: 20120209, end: 20120211
  7. CYTOTEC [Concomitant]
     Route: 048
     Dates: start: 20120209, end: 20120211
  8. PEG-INTRON [Concomitant]
     Route: 058
     Dates: start: 20120224

REACTIONS (8)
  - DEPRESSION [None]
  - NAUSEA [None]
  - DECREASED APPETITE [None]
  - DRUG ERUPTION [None]
  - PRURITUS [None]
  - ABNORMAL BEHAVIOUR [None]
  - RASH [None]
  - INSOMNIA [None]
